FAERS Safety Report 19668531 (Version 1)
Quarter: 2021Q3

REPORT INFORMATION
  Report Type: Spontaneous
  Country: CN (occurrence: CN)
  Receive Date: 20210806
  Receipt Date: 20210806
  Transmission Date: 20211014
  Serious: Yes (Other)
  Sender: FDA-Public Use
  Company Number: CN-PFIZER INC-202100970784

PATIENT
  Age: 26 Year
  Sex: Female
  Weight: 46.3 kg

DRUGS (1)
  1. METHOTREXATE. [Suspect]
     Active Substance: METHOTREXATE
     Indication: ABORTION
     Dosage: 50 MG, 1X/DAY
     Route: 030
     Dates: start: 20210602, end: 20210602

REACTIONS (4)
  - Asthenia [Recovered/Resolved]
  - Pyrexia [Recovered/Resolved]
  - Feeling cold [Recovered/Resolved]
  - Off label use [Unknown]

NARRATIVE: CASE EVENT DATE: 20210602
